FAERS Safety Report 14263166 (Version 1)
Quarter: 2017Q4

REPORT INFORMATION
  Report Type: Spontaneous
  Country: FR (occurrence: FR)
  Receive Date: 20171208
  Receipt Date: 20171208
  Transmission Date: 20180321
  Serious: Yes (Death, Other)
  Sender: FDA-Public Use
  Company Number: FR-JNJFOC-20171210206

PATIENT

DRUGS (5)
  1. DOXORUBICIN HYDROCHLORIDE. [Suspect]
     Active Substance: DOXORUBICIN HYDROCHLORIDE
     Indication: SOFT TISSUE SARCOMA
     Route: 065
  2. IFOSFAMIDE. [Suspect]
     Active Substance: IFOSFAMIDE
     Indication: SOFT TISSUE SARCOMA
     Route: 065
  3. DOXORUBICIN HYDROCHLORIDE. [Suspect]
     Active Substance: DOXORUBICIN HYDROCHLORIDE
     Indication: SOFT TISSUE SARCOMA
     Route: 065
  4. MESNA. [Suspect]
     Active Substance: MESNA
     Indication: SOFT TISSUE SARCOMA
     Route: 065
  5. DACARBAZINE. [Suspect]
     Active Substance: DACARBAZINE
     Indication: SOFT TISSUE SARCOMA
     Route: 065

REACTIONS (8)
  - Arthritis bacterial [Unknown]
  - Haematotoxicity [Unknown]
  - Cardiac failure [Fatal]
  - Off label use [Unknown]
  - Neutropenia [Unknown]
  - Product use in unapproved indication [Unknown]
  - Gastrointestinal toxicity [Unknown]
  - Dermatitis [Unknown]
